FAERS Safety Report 24120248 (Version 2)
Quarter: 2024Q3

REPORT INFORMATION
  Report Type: Spontaneous
  Country: US (occurrence: US)
  Receive Date: 20240722
  Receipt Date: 20240723
  Transmission Date: 20241017
  Serious: No
  Sender: BAYER
  Company Number: US-BAYER-2024A105854

PATIENT
  Age: 21 Year
  Sex: Female

DRUGS (1)
  1. MIRENA [Suspect]
     Active Substance: LEVONORGESTREL
     Dosage: 20?G/DAY
     Route: 015
     Dates: start: 20240711, end: 20240717

REACTIONS (3)
  - Procedural pain [None]
  - Device dislocation [Recovered/Resolved]
  - Device use issue [None]

NARRATIVE: CASE EVENT DATE: 20240711
